FAERS Safety Report 9617835 (Version 7)
Quarter: 2014Q2

REPORT INFORMATION
  Report Type: Spontaneous
  Country: CA (occurrence: CA)
  Receive Date: 20131011
  Receipt Date: 20140421
  Transmission Date: 20141212
  Serious: Yes (Other)
  Sender: FDA-Public Use
  Company Number: CA-ROCHE-1287575

PATIENT
  Age: 47 Year
  Sex: Female

DRUGS (9)
  1. XOLAIR [Suspect]
     Indication: ASTHMA
     Route: 058
     Dates: start: 20130812
  2. XOLAIR [Suspect]
     Route: 058
     Dates: start: 20131007
  3. XOLAIR [Suspect]
     Route: 058
     Dates: start: 20131104
  4. XOLAIR [Suspect]
     Route: 058
     Dates: start: 20140409
  5. GRAVOL [Concomitant]
  6. SYNTHROID [Concomitant]
     Route: 065
     Dates: start: 201310
  7. ADVAIR [Concomitant]
  8. SINGULAIR [Concomitant]
  9. IPRATROPIUM BROMIDE [Concomitant]

REACTIONS (15)
  - Eye infection [Recovering/Resolving]
  - Eye allergy [Recovering/Resolving]
  - Dyspnoea [Unknown]
  - Headache [Recovered/Resolved]
  - Nausea [Recovered/Resolved]
  - Dizziness [Recovered/Resolved]
  - Influenza [Unknown]
  - Road traffic accident [Unknown]
  - Retching [Recovering/Resolving]
  - Malaise [Recovering/Resolving]
  - Fatigue [Recovering/Resolving]
  - Lung infection [Unknown]
  - Cough [Unknown]
  - Dysphonia [Unknown]
  - Drug ineffective [Unknown]
